FAERS Safety Report 7267921-6 (Version None)
Quarter: 2011Q1

REPORT INFORMATION
  Report Type: 
  Country: None (occurrence: None)
  Receive Date: 20110201
  Receipt Date: 20110124
  Transmission Date: 20110831
  Serious: Yes (Other)
  Sender: FDA-Public Use
  Company Number: CA-ROCHE-756372

PATIENT
  Age: 33 Year
  Sex: Female

DRUGS (1)
  1. OSELTAMIVIR [Suspect]
     Indication: H1N1 INFLUENZA
     Route: 065
     Dates: start: 20091022, end: 20091110

REACTIONS (3)
  - PATHOGEN RESISTANCE [None]
  - INFLUENZA [None]
  - DRUG INEFFECTIVE [None]
